FAERS Safety Report 20913669 (Version 2)
Quarter: 2022Q2

REPORT INFORMATION
  Report Type: Report from Study
  Country: US (occurrence: US)
  Receive Date: 20220604
  Receipt Date: 20220620
  Transmission Date: 20220721
  Serious: Yes (Other)
  Sender: FDA-Public Use
  Company Number: US-AMGEN-USASL2022093545

PATIENT
  Age: 75 Year
  Sex: Female

DRUGS (2)
  1. REPATHA [Suspect]
     Active Substance: EVOLOCUMAB
     Indication: Hypercholesterolaemia
     Dosage: UNK UNK, QMO
     Route: 065
     Dates: start: 20201105, end: 202111
  2. REPATHA [Suspect]
     Active Substance: EVOLOCUMAB
     Dosage: 140 MILLIGRAM, Q2WK
     Route: 065

REACTIONS (10)
  - Loss of consciousness [Unknown]
  - Gallbladder operation [Unknown]
  - Urethral repair [Unknown]
  - Dizziness [Unknown]
  - Injection site pain [Unknown]
  - Injection site reaction [Unknown]
  - Joint swelling [Unknown]
  - Feeling hot [Unknown]
  - Breast disorder [Unknown]
  - Fatigue [Unknown]

NARRATIVE: CASE EVENT DATE: 20210701
